FAERS Safety Report 23188496 (Version 5)
Quarter: 2024Q3

REPORT INFORMATION
  Report Type: Spontaneous
  Country: US (occurrence: US)
  Receive Date: 20231115
  Receipt Date: 20240923
  Transmission Date: 20241017
  Serious: Yes (Other)
  Sender: PFIZER
  Company Number: US-PFIZER INC-202300366151

PATIENT
  Age: 77 Year
  Sex: Female

DRUGS (1)
  1. XELJANZ XR [Suspect]
     Active Substance: TOFACITINIB CITRATE
     Dosage: 11 MG
     Dates: start: 202311

REACTIONS (15)
  - Corneal transplant [Unknown]
  - Product dose omission issue [Unknown]
  - Eye infection [Recovered/Resolved]
  - Nausea [Not Recovered/Not Resolved]
  - Joint swelling [Not Recovered/Not Resolved]
  - Arthralgia [Not Recovered/Not Resolved]
  - Peripheral swelling [Not Recovered/Not Resolved]
  - Pain in extremity [Not Recovered/Not Resolved]
  - Cough [Unknown]
  - Pharyngeal disorder [Unknown]
  - Fatigue [Unknown]
  - Back pain [Unknown]
  - Tendonitis [Unknown]
  - Sinusitis [Unknown]
  - Arthritis [Unknown]
